FAERS Safety Report 8451920-2 (Version None)
Quarter: 2012Q2

REPORT INFORMATION
  Report Type: 
  Country: None (occurrence: None)
  Receive Date: 20120620
  Receipt Date: 20120405
  Transmission Date: 20120825
  Serious: No
  Sender: FDA-Public Use
  Company Number: US-VERTEX PHARMACEUTICALS INC.-AE-2012-004295

PATIENT
  Sex: Female
  Weight: 59.02 kg

DRUGS (7)
  1. LISINOPRIL [Concomitant]
     Indication: BLOOD PRESSURE
     Route: 048
  2. HYDROCHLOROTHIAZIDE [Concomitant]
  3. ALLERGY PILL [Concomitant]
     Indication: HYPERSENSITIVITY
     Dates: start: 20110101
  4. INCIVEK [Suspect]
     Indication: HEPATITIS C
     Route: 048
     Dates: start: 20120312
  5. RIBASPHERE [Concomitant]
     Indication: HEPATITIS C
     Route: 048
     Dates: start: 20120312
  6. AMBIEN [Concomitant]
     Dates: start: 20110101
  7. PEGINTERFERON ALFA-2A [Concomitant]
     Indication: HEPATITIS C
     Route: 058
     Dates: start: 20120312

REACTIONS (5)
  - VOMITING [None]
  - HEADACHE [None]
  - INJECTION SITE RASH [None]
  - NECK MASS [None]
  - HAEMORRHOIDS [None]
